FAERS Safety Report 20590120 (Version 1)
Quarter: 2022Q1

REPORT INFORMATION
  Report Type: Spontaneous
  Country: US (occurrence: US)
  Receive Date: 20220314
  Receipt Date: 20220314
  Transmission Date: 20220423
  Serious: Yes (Hospitalization)
  Sender: FDA-Public Use
  Company Number: US-ELI_LILLY_AND_COMPANY-US202203000567

PATIENT
  Age: 77 Year
  Sex: Female

DRUGS (2)
  1. EVISTA [Suspect]
     Active Substance: RALOXIFENE HYDROCHLORIDE
     Indication: Product used for unknown indication
     Dosage: UNK, UNKNOWN
     Route: 048
  2. TYMLOS [Suspect]
     Active Substance: ABALOPARATIDE
     Indication: Osteoporosis
     Dosage: 80 UG, DAILY
     Route: 058
     Dates: start: 20211201

REACTIONS (5)
  - Pain in jaw [Unknown]
  - Chest pain [Unknown]
  - Breast pain [Unknown]
  - Coagulopathy [Unknown]
  - Thrombosis [Unknown]

NARRATIVE: CASE EVENT DATE: 20211211
